FAERS Safety Report 7210978-9 (Version None)
Quarter: 2011Q1

REPORT INFORMATION
  Report Type: 
  Country: None (occurrence: None)
  Receive Date: 20110105
  Receipt Date: 20110103
  Transmission Date: 20110831
  Serious: Yes (Hospitalization)
  Sender: FDA-Public Use
  Company Number: A0902820A

PATIENT
  Age: 26 Year
  Sex: Female

DRUGS (3)
  1. PENICILLIN [Concomitant]
     Route: 065
     Dates: start: 20070114, end: 20070115
  2. TRAZODONE [Concomitant]
  3. LAMICTAL [Suspect]
     Dosage: 50MG TWICE PER DAY
     Route: 048
     Dates: end: 20070115

REACTIONS (5)
  - TOXIC EPIDERMAL NECROLYSIS [None]
  - KERATOCONJUNCTIVITIS SICCA [None]
  - STEVENS-JOHNSON SYNDROME [None]
  - SYMBLEPHARON [None]
  - DRUG HYPERSENSITIVITY [None]
